FAERS Safety Report 7072179-7 (Version None)
Quarter: 2010Q4

REPORT INFORMATION
  Report Type: 
  Country: None (occurrence: None)
  Receive Date: 20101029
  Receipt Date: 20091214
  Transmission Date: 20110411
  Serious: No
  Sender: FDA-Public Use
  Company Number: A0834980A

PATIENT
  Age: 65 Year
  Sex: Male

DRUGS (8)
  1. ADVAIR DISKUS 100/50 [Suspect]
     Route: 055
     Dates: start: 20091201
  2. FOLIC ACID [Concomitant]
  3. VITAMIN D [Concomitant]
  4. SIMVASTATIN [Concomitant]
  5. ASPIRIN [Concomitant]
  6. FLUDROCORTISONE [Concomitant]
  7. PLAVIX [Concomitant]
  8. CHEMOTHERAPY [Concomitant]

REACTIONS (1)
  - DIARRHOEA [None]
